FAERS Safety Report 9888280 (Version 1)
Quarter: 2014Q1

REPORT INFORMATION
  Report Type: Spontaneous
  Country: US (occurrence: US)
  Receive Date: 20140211
  Receipt Date: 20140211
  Transmission Date: 20141002
  Serious: No
  Sender: FDA-Public Use
  Company Number: US-PFIZER INC-2014037031

PATIENT
  Age: 49 Year
  Sex: Female

DRUGS (15)
  1. XELJANZ [Suspect]
     Indication: RHEUMATOID ARTHRITIS
     Dosage: 5 MG, 2X/DAY (TWICE A DAY)
     Route: 048
     Dates: start: 20131005
  2. SINGULAIR [Concomitant]
     Dosage: 10 MG, UNK
  3. PLAQUENIL [Concomitant]
     Dosage: 200 MG, UNK
  4. AMBIEN [Concomitant]
     Dosage: 5 MG, UNK
  5. PREDNISONE [Concomitant]
     Dosage: 5 MG, UNK
  6. PREDNISONE [Concomitant]
     Dosage: 20 MG, DAILY
  7. BUMETANIDE [Concomitant]
     Dosage: 2 MG, UNK
  8. DILTIAZEM [Concomitant]
     Dosage: 120 MG, UNK (24HR ER)
  9. FOLIC ACID [Concomitant]
     Dosage: 1 MG, UNK
  10. LISINOPRIL [Concomitant]
     Dosage: 10 MG, UNK
  11. VENTOLIN HFA [Concomitant]
     Dosage: 90 UG, UNK
  12. ADVAIR DISKUS [Concomitant]
     Dosage: UNK (250-50)
  13. TRAZODONE [Concomitant]
     Dosage: 50 MG, UNK
  14. NEXIUM [Concomitant]
     Dosage: 40 MG, UNK
  15. OMNARIS [Concomitant]
     Dosage: 50 UG, UNK

REACTIONS (3)
  - Bronchitis [Not Recovered/Not Resolved]
  - Cough [Not Recovered/Not Resolved]
  - Nasal congestion [Not Recovered/Not Resolved]
